FAERS Safety Report 12163573 (Version 2)
Quarter: 2016Q3

REPORT INFORMATION
  Report Type: Spontaneous
  Country: US (occurrence: US)
  Receive Date: 20160309
  Receipt Date: 20160808
  Transmission Date: 20161109
  Serious: No
  Sender: FDA-Public Use
  Company Number: US-CELGENEUS-USA-2016031270

PATIENT
  Sex: Male

DRUGS (2)
  1. OTEZLA [Suspect]
     Active Substance: APREMILAST
     Indication: PSORIASIS
     Dosage: STARTER PACK
     Route: 048
     Dates: start: 20150923
  2. OTEZLA [Suspect]
     Active Substance: APREMILAST
     Route: 048
     Dates: end: 20160622

REACTIONS (2)
  - Condition aggravated [Recovering/Resolving]
  - Drug ineffective [Recovering/Resolving]
